FAERS Safety Report 13132920 (Version 1)
Quarter: 2017Q1

REPORT INFORMATION
  Report Type: Spontaneous
  Country: US (occurrence: US)
  Receive Date: 20170119
  Receipt Date: 20170119
  Transmission Date: 20170428
  Serious: Yes (Hospitalization)
  Sender: FDA-Public Use
  Company Number: None

PATIENT
  Age: 77 Year
  Sex: Female
  Weight: 70.2 kg

DRUGS (35)
  1. COMBIVENT [Concomitant]
     Active Substance: ALBUTEROL SULFATE\IPRATROPIUM BROMIDE
  2. NORVASC [Concomitant]
     Active Substance: AMLODIPINE BESYLATE
  3. GENTAMICIN SULFATE CREAM [Concomitant]
  4. MELATONIN [Concomitant]
     Active Substance: MELATONIN
  5. LEVOTHYROXINE SODIUM (SYNTHROID) [Concomitant]
  6. THERAGRAM M PREMIERE 50 PLUS [Concomitant]
  7. TRAZODONE [Concomitant]
     Active Substance: TRAZODONE HYDROCHLORIDE
  8. CLONIDINE HCL [Concomitant]
     Active Substance: CLONIDINE HYDROCHLORIDE
  9. AURYXIA [Suspect]
     Active Substance: TETRAFERRIC TRICITRATE DECAHYDRATE
     Indication: CONSTIPATION
     Dosage: ?          QUANTITY:50 TABLET(S);?
     Route: 048
     Dates: start: 20161214, end: 20170114
  10. THIAMIN HCL [Concomitant]
  11. MESYLATE (CARDURA) [Concomitant]
  12. SIMVASTATIN. [Concomitant]
     Active Substance: SIMVASTATIN
  13. OXYCODONE HYDROCHLORIDE. [Concomitant]
     Active Substance: OXYCODONE HYDROCHLORIDE
  14. VITAMIN ESTER-C [Concomitant]
  15. IPRATROPIUM BROMIDE AND ALBUTEROL SULFATE (DUONEB PACK) [Concomitant]
  16. METOCLOPRAMIDE. [Concomitant]
     Active Substance: METOCLOPRAMIDE
  17. RENALCAPS [Concomitant]
  18. PROBIOTIC CAPSULES [Concomitant]
     Active Substance: PROBIOTICS NOS
  19. ADVAIR HFA [Concomitant]
     Active Substance: FLUTICASONE PROPIONATE\SALMETEROL XINAFOATE
  20. PANTOPRAZOLE [Concomitant]
     Active Substance: PANTOPRAZOLE SODIUM
  21. SENSIPAR [Concomitant]
     Active Substance: CINACALCET HYDROCHLORIDE
  22. DOXAZOSIN [Concomitant]
     Active Substance: DOXAZOSIN\DOXAZOSIN MESYLATE
  23. BIOTIN [Concomitant]
     Active Substance: BIOTIN
  24. CALCITRIOL. [Concomitant]
     Active Substance: CALCITRIOL
  25. METOPROLOL TARTRATE (LOPRESSOR) [Concomitant]
  26. RENVELA [Concomitant]
     Active Substance: SEVELAMER CARBONATE
  27. MUCUS RELIEF DM OCUVITE 50+ [Concomitant]
  28. EXELON [Concomitant]
     Active Substance: RIVASTIGMINE TARTRATE
  29. VITAMIN D [Concomitant]
     Active Substance: CHOLECALCIFEROL
  30. FOLIC ACID. [Concomitant]
     Active Substance: FOLIC ACID
  31. LIDOCAINE. [Concomitant]
     Active Substance: LIDOCAINE
  32. FENTANYL. [Concomitant]
     Active Substance: FENTANYL
  33. ALPRAZOLAM. [Concomitant]
     Active Substance: ALPRAZOLAM
  34. ALPHA LIPOIC ACID [Concomitant]
     Active Substance: .ALPHA.-LIPOIC ACID
  35. LUTEIN [Concomitant]
     Active Substance: LUTEIN

REACTIONS (6)
  - Nausea [None]
  - Cough [None]
  - Abdominal pain [None]
  - Faeces discoloured [None]
  - Vomiting [None]
  - Constipation [None]

NARRATIVE: CASE EVENT DATE: 20170110
